FAERS Safety Report 6662343-0 (Version None)
Quarter: 2010Q1

REPORT INFORMATION
  Report Type: 
  Country: None (occurrence: None)
  Receive Date: 20100331
  Receipt Date: 20090918
  Transmission Date: 20100710
  Serious: No
  Sender: FDA-Public Use
  Company Number: US-ABBOTT-09P-163-0598545-00

PATIENT
  Sex: Female
  Weight: 88.984 kg

DRUGS (2)
  1. LUPRON DEPOT [Suspect]
     Indication: UTERINE LEIOMYOMA
     Dates: start: 20090501
  2. FERRALETE [Concomitant]
     Indication: ANAEMIA

REACTIONS (2)
  - FEELING HOT [None]
  - WEIGHT INCREASED [None]
